FAERS Safety Report 4431498-0 (Version None)
Quarter: 2004Q3

REPORT INFORMATION
  Report Type: 
  Country: None (occurrence: None)
  Receive Date: 20040824
  Receipt Date: 20040709
  Transmission Date: 20050211
  Serious: Yes (Life-Threatening)
  Sender: FDA-Public Use
  Company Number: FR-BRISTOL-MYERS SQUIBB COMPANY-12636494

PATIENT
  Age: 33 Year
  Sex: Male
  Weight: 57 kg

DRUGS (7)
  1. REYATAZ [Suspect]
     Indication: HIV INFECTION
     Route: 048
     Dates: start: 20040413, end: 20040702
  2. AMBISOME [Suspect]
     Indication: VISCERAL LEISHMANIASIS
     Route: 042
     Dates: start: 20040401, end: 20040501
  3. VIDEX [Concomitant]
     Indication: HIV INFECTION
     Dates: start: 20030315, end: 20040702
  4. NORVIR [Concomitant]
     Indication: HIV INFECTION
     Dosage: ONCE DAILY
  5. VIREAD [Concomitant]
     Indication: HIV INFECTION
     Dates: start: 20030115, end: 20040702
  6. IMOVANE [Concomitant]
     Indication: INSOMNIA
  7. BACTRIM DS [Concomitant]
     Dosage: DOSAGE FORM: TABLET
     Dates: start: 20030115

REACTIONS (2)
  - CHOLANGITIS SCLEROSING [None]
  - HEPATITIS CHOLESTATIC [None]
